FAERS Safety Report 13622618 (Version 1)
Quarter: 2017Q2

REPORT INFORMATION
  Report Type: Spontaneous
  Country: FR (occurrence: FR)
  Receive Date: 20170607
  Receipt Date: 20170607
  Transmission Date: 20170830
  Serious: Yes (Death)
  Sender: FDA-Public Use
  Company Number: FR-IPSEN BIOPHARMACEUTICALS, INC.-2017-02742

PATIENT
  Sex: Male
  Weight: 48 kg

DRUGS (1)
  1. SOMATULINE L.P. 120MG [Suspect]
     Active Substance: LANREOTIDE ACETATE
     Indication: PANCREATIC NEUROENDOCRINE TUMOUR
     Dosage: 120 MG
     Route: 058

REACTIONS (4)
  - Injection site pain [Unknown]
  - Injection site nodule [Unknown]
  - Death [Fatal]
  - Drug administered at inappropriate site [Unknown]

NARRATIVE: CASE EVENT DATE: 2017
